FAERS Safety Report 7408271-4 (Version None)
Quarter: 2011Q2

REPORT INFORMATION
  Report Type: 
  Country: None (occurrence: None)
  Receive Date: 20110412
  Receipt Date: 20110315
  Transmission Date: 20111010
  Serious: Yes (Hospitalization, Other)
  Sender: FDA-Public Use
  Company Number: US-BAYER-2010-001452

PATIENT
  Age: 29 Year
  Sex: Female
  Weight: 53.968 kg

DRUGS (4)
  1. ALEVE [Concomitant]
  2. IBUPROFEN [Concomitant]
     Dosage: UNK UNK, PRN
  3. YAZ [Suspect]
     Indication: ACNE
  4. YAZ [Suspect]
     Indication: ORAL CONTRACEPTION
     Dosage: UNK
     Dates: start: 20071101, end: 20080918

REACTIONS (1)
  - PULMONARY EMBOLISM [None]
